FAERS Safety Report 17097320 (Version 1)
Quarter: 2019Q4

REPORT INFORMATION
  Report Type: Spontaneous
  Country: US (occurrence: US)
  Receive Date: 20191202
  Receipt Date: 20191202
  Transmission Date: 20200122
  Serious: Yes (Life-Threatening, Hospitalization, Disabling)
  Sender: FDA-Public Use
  Company Number: US-009507513-1911USA012331

PATIENT
  Age: 59 Year
  Sex: Female

DRUGS (17)
  1. MARINOL [Concomitant]
     Active Substance: DRONABINOL
     Dosage: UNK
  2. LANTUS [Concomitant]
     Active Substance: INSULIN GLARGINE
     Dosage: UNK
  3. FLAGYL (METRONIDAZOLE BENZOATE) [Concomitant]
     Active Substance: METRONIDAZOLE BENZOATE
     Dosage: UNK
  4. TYLENOL [Concomitant]
     Active Substance: ACETAMINOPHEN
     Dosage: UNK
  5. LOPRESSOR [Concomitant]
     Active Substance: METOPROLOL TARTRATE
     Dosage: UNK
  6. NEURONTIN [Concomitant]
     Active Substance: GABAPENTIN
     Dosage: UNK
  7. CRESTOR [Concomitant]
     Active Substance: ROSUVASTATIN CALCIUM
     Dosage: UNK
  8. ASPIRIN. [Concomitant]
     Active Substance: ASPIRIN
     Dosage: UNK
  9. LASIX [Concomitant]
     Active Substance: FUROSEMIDE
     Dosage: UNK
  10. PRINIVIL [Concomitant]
     Active Substance: LISINOPRIL
     Dosage: UNK
  11. CUBICIN [Suspect]
     Active Substance: DAPTOMYCIN
     Indication: STAPHYLOCOCCAL BACTERAEMIA
  12. CLARITIN [Concomitant]
     Active Substance: LORATADINE
     Dosage: UNK
  13. FORTAZ [Concomitant]
     Active Substance: CEFTAZIDIME SODIUM
     Dosage: UNK
  14. CUBICIN [Suspect]
     Active Substance: DAPTOMYCIN
     Indication: ENDOCARDITIS
     Dosage: 8 MILLIGRAM/KILOGRAM, DAILY
     Route: 042
     Dates: start: 20191109
  15. HUMALOG [Concomitant]
     Active Substance: INSULIN LISPRO
     Dosage: UNK
  16. PROTONIX [Concomitant]
     Active Substance: PANTOPRAZOLE SODIUM
     Dosage: UNK
  17. HEPARIN [Concomitant]
     Active Substance: HEPARIN SODIUM
     Dosage: UNK

REACTIONS (2)
  - Leg amputation [Not Recovered/Not Resolved]
  - Phantom limb syndrome [Not Recovered/Not Resolved]

NARRATIVE: CASE EVENT DATE: 20191113
